FAERS Safety Report 4813318-5 (Version None)
Quarter: 2005Q4

REPORT INFORMATION
  Report Type: 
  Country: None (occurrence: None)
  Receive Date: 20051028
  Receipt Date: 20050428
  Transmission Date: 20060501
  Serious: No
  Sender: FDA-Public Use
  Company Number: US-GLAXOSMITHKLINE-A0556225A

PATIENT
  Age: 41 Year
  Sex: Female

DRUGS (5)
  1. ADVAIR DISKUS 100/50 [Suspect]
     Indication: ASTHMA
     Dosage: 1BLS TWICE PER DAY
     Route: 055
     Dates: start: 20050423, end: 20050424
  2. KENALOG [Concomitant]
  3. NASACORT [Concomitant]
  4. ZYRTEC [Concomitant]
  5. ALBUTEROL [Concomitant]

REACTIONS (3)
  - HEART RATE INCREASED [None]
  - MYDRIASIS [None]
  - TREMOR [None]
